FAERS Safety Report 24073207 (Version 2)
Quarter: 2024Q3

REPORT INFORMATION
  Report Type: Spontaneous
  Country: JP (occurrence: JP)
  Receive Date: 20240710
  Receipt Date: 20240830
  Transmission Date: 20241017
  Serious: Yes (Hospitalization, Disabling, Other)
  Sender: ASTELLAS
  Company Number: JP-ASTELLAS-2022JP009064

PATIENT
  Age: 56 Year
  Sex: Male
  Weight: 49 kg

DRUGS (21)
  1. PADCEV [Suspect]
     Active Substance: ENFORTUMAB VEDOTIN-EJFV
     Indication: Metastatic carcinoma of the bladder
     Dosage: 1.25 MG/KG(78MG)
     Route: 042
     Dates: start: 20220502, end: 20220509
  2. PADCEV [Suspect]
     Active Substance: ENFORTUMAB VEDOTIN-EJFV
     Dosage: 1.25 MG/KG(78MG)
     Route: 042
     Dates: start: 20220601, end: 20220615
  3. PADCEV [Suspect]
     Active Substance: ENFORTUMAB VEDOTIN-EJFV
     Dosage: 1.00 MG/KG(60MG)
     Route: 042
     Dates: start: 20220706, end: 20220713
  4. PADCEV [Suspect]
     Active Substance: ENFORTUMAB VEDOTIN-EJFV
     Dosage: 1.00 MG/KG(60MG)
     Route: 042
     Dates: start: 20220803, end: 20220803
  5. PADCEV [Suspect]
     Active Substance: ENFORTUMAB VEDOTIN-EJFV
     Route: 042
     Dates: start: 20220831, end: 20220907
  6. PADCEV [Suspect]
     Active Substance: ENFORTUMAB VEDOTIN-EJFV
     Route: 042
     Dates: start: 20220928, end: 20220928
  7. Otezla tablet 30mg [Concomitant]
     Indication: Psoriasis
     Route: 048
  8. Bonalfa high lotion 20 ?g/g [Concomitant]
     Indication: Psoriasis
     Dosage: EXTERNAL USE, APPROPRIATE AMOUNT
     Route: 065
  9. Dermovate Scalp Lotion 0.05% [Concomitant]
     Indication: Psoriasis
     Dosage: EXTERNAL USE, APPROPRIATE AMOUNT, SEVERAL TIMES A DAY
     Route: 065
  10. FEXOFENADINE HYDROCHLORIDE [Concomitant]
     Active Substance: FEXOFENADINE HYDROCHLORIDE
     Indication: Urticaria
     Route: 065
  11. CHLORPHENIRAMINE [Concomitant]
     Active Substance: CHLORPHENIRAMINE
     Indication: Urticaria
     Dosage: MORNING
     Route: 048
     Dates: start: 20220518
  12. PYRIDOXINE [Concomitant]
     Active Substance: PYRIDOXINE
     Indication: Urticaria
     Route: 048
     Dates: start: 20220518
  13. CALCIUM GLUCONATE [Concomitant]
     Active Substance: CALCIUM GLUCONATE
     Indication: Urticaria
     Route: 048
     Dates: start: 20220518
  14. GLYCYRRHIZINATE DIPOTASSIUM [Concomitant]
     Indication: Urticaria
     Route: 048
     Dates: start: 20220518
  15. Azunol gargle liquid 4% [Concomitant]
     Indication: Taste disorder
     Dosage: GARGLE, 5 DROP, TWICE DAILY
     Route: 050
     Dates: start: 20220518, end: 20220615
  16. Azunol Ointment 0.033% [Concomitant]
     Indication: Taste disorder
     Dosage: INTRAORAL APPLICATION, APPROPRIATE AMOUNT, SEVERAL TIMES A DAY
     Route: 050
     Dates: start: 20220615, end: 20220803
  17. XYLOCAINE [Concomitant]
     Active Substance: LIDOCAINE HYDROCHLORIDE
     Indication: Taste disorder
     Dosage: INTRAORAL APPLICATION, APPROPRIATE AMOUNT, SEVERAL TIMES A DAY
     Route: 050
     Dates: start: 20220615, end: 20220803
  18. Niflan Ophthalmic Solution 0.1% [Concomitant]
     Indication: Vision blurred
     Dosage: APPROPRIATE AMOUNT, SEVERAL TIMES A DAY
     Route: 047
     Dates: start: 20220810, end: 20220831
  19. Mosapride citrate 5mg [Concomitant]
     Indication: Mechanical ileus
     Route: 048
     Dates: start: 20220919
  20. Tsumura Daikenchuto 2.5g [Concomitant]
     Indication: Mechanical ileus
     Route: 048
     Dates: start: 20220919
  21. Magmitt 330mg [Concomitant]
     Indication: Mechanical ileus
     Route: 048
     Dates: start: 20220920

REACTIONS (7)
  - Urticaria [Recovering/Resolving]
  - Taste disorder [Not Recovered/Not Resolved]
  - Alopecia [Not Recovered/Not Resolved]
  - Mechanical ileus [Recovering/Resolving]
  - Vision blurred [Recovering/Resolving]
  - Paralysis [Not Recovered/Not Resolved]
  - Pathological fracture [Not Recovered/Not Resolved]

NARRATIVE: CASE EVENT DATE: 20220518
